FAERS Safety Report 4626101-0 (Version None)
Quarter: 2005Q1

REPORT INFORMATION
  Report Type: 
  Country: None (occurrence: None)
  Receive Date: 20050330
  Receipt Date: 20050318
  Transmission Date: 20050727
  Serious: Yes (Congenital Anomaly, Other)
  Sender: FDA-Public Use
  Company Number: 2005001859

PATIENT
  Age: 20 Year
  Sex: Female
  Weight: 52.1637 kg

DRUGS (5)
  1. DEPO-PROVERA [Suspect]
     Indication: CONTRACEPTION
     Dosage: SEE IMAGE
     Route: 030
     Dates: start: 20030918, end: 20030918
  2. DEPO-PROVERA [Suspect]
     Indication: CONTRACEPTION
     Dosage: SEE IMAGE
     Route: 030
     Dates: start: 20040831, end: 20040831
  3. ESCITALOPRAM OXALATE [Suspect]
     Indication: DEPRESSION
     Dates: end: 20040101
  4. FLUOXETINE HCL [Suspect]
     Indication: DEPRESSION
     Dosage: 20-40MG DAILY (DAILY), ORAL
     Route: 048
     Dates: start: 20040101
  5. MULTIVITAMINS 9ASCORBIC ACID, ERGOCALCIFEROL, FOLIC ACID, NICOTINAMIDE [Concomitant]

REACTIONS (6)
  - ALOPECIA [None]
  - BONE DENSITY DECREASED [None]
  - OVARIAN FAILURE [None]
  - PREMATURE MENOPAUSE [None]
  - SPINAL DEFORMITY [None]
  - WEIGHT DECREASED [None]
